FAERS Safety Report 20480261 (Version 1)
Quarter: 2022Q1

REPORT INFORMATION
  Report Type: Spontaneous
  Country: ZA (occurrence: None)
  Receive Date: 20220216
  Receipt Date: 20220216
  Transmission Date: 20220424
  Serious: Yes (Hospitalization, Disabling)
  Sender: FDA-Public Use
  Company Number: 2022A064928

PATIENT
  Age: 16250 Day
  Sex: Female
  Weight: 93 kg

DRUGS (1)
  1. ROSUVASTATIN [Suspect]
     Active Substance: ROSUVASTATIN
     Indication: Blood cholesterol abnormal
     Dosage: 10 DAILY
     Route: 048
     Dates: start: 20210501

REACTIONS (4)
  - Tendonitis [Not Recovered/Not Resolved]
  - Bursitis infective [Not Recovered/Not Resolved]
  - Gait disturbance [Unknown]
  - Tendon pain [Unknown]

NARRATIVE: CASE EVENT DATE: 20210908
